FAERS Safety Report 4384165-6 (Version None)
Quarter: 2004Q2

REPORT INFORMATION
  Report Type: 
  Country: None (occurrence: None)
  Receive Date: 20040621
  Receipt Date: 20040609
  Transmission Date: 20050107
  Serious: No
  Sender: FDA-Public Use
  Company Number: 8208

PATIENT
  Age: 68 Year
  Sex: Female

DRUGS (9)
  1. METHOTREXATE [Suspect]
     Dosage: 25 MG WEEKLY SC
     Route: 058
     Dates: start: 19980526, end: 20030818
  2. DETROL [Concomitant]
  3. LIPITOR [Concomitant]
  4. LORCET-HD [Concomitant]
  5. AVAPRO [Concomitant]
  6. ATENOLOL [Concomitant]
  7. LOTENSIN [Concomitant]
  8. HYTRIN [Concomitant]
  9. PREDNISOLONE [Concomitant]

REACTIONS (1)
  - FUNGAL INFECTION [None]
